FAERS Safety Report 5881328-5 (Version None)
Quarter: 2008Q3

REPORT INFORMATION
  Report Type: 
  Country: None (occurrence: None)
  Receive Date: 20080912
  Receipt Date: 20080624
  Transmission Date: 20090109
  Serious: No
  Sender: FDA-Public Use
  Company Number: US-ABBOTT-08P-163-0459720-00

PATIENT
  Sex: Female
  Weight: 77.18 kg

DRUGS (3)
  1. HUMIRA [Suspect]
     Indication: PSORIATIC ARTHROPATHY
     Route: 058
     Dates: start: 20070717, end: 20080101
  2. HUMIRA [Suspect]
     Route: 058
     Dates: start: 20080509
  3. HUMIRA [Suspect]
     Route: 058
     Dates: start: 20080509

REACTIONS (7)
  - DIZZINESS [None]
  - NAUSEA [None]
  - NYSTAGMUS [None]
  - PAIN IN EXTREMITY [None]
  - PSORIATIC ARTHROPATHY [None]
  - URINARY TRACT INFECTION [None]
  - VERTIGO POSITIONAL [None]
